FAERS Safety Report 9363153 (Version 1)
Quarter: 2013Q2

REPORT INFORMATION
  Report Type: Spontaneous
  Country: US (occurrence: None)
  Receive Date: 20130621
  Receipt Date: 20130621
  Transmission Date: 20140414
  Serious: Yes (Other)
  Sender: FDA-Public Use
  Company Number: None

PATIENT
  Age: 41 Year
  Sex: Female

DRUGS (2)
  1. ICLUSIG [Suspect]
     Route: 048
  2. ICLUSIG [Suspect]
     Route: 048

REACTIONS (1)
  - Rash [None]
